FAERS Safety Report 9632191 (Version 3)
Quarter: 2013Q4

REPORT INFORMATION
  Report Type: Spontaneous
  Country: US (occurrence: US)
  Receive Date: 20131018
  Receipt Date: 20131107
  Transmission Date: 20140711
  Serious: Yes (Hospitalization, Other)
  Sender: FDA-Public Use
  Company Number: US-SA-2013SA103099

PATIENT
  Age: 64 Year
  Sex: Female
  Weight: 122.47 kg

DRUGS (12)
  1. LOVENOX [Suspect]
     Indication: THROMBOSIS PROPHYLAXIS
     Dosage: DOSE:120 MILLIGRAM(S)/MILLILITRE
     Route: 058
     Dates: start: 201305
  2. ADVIL [Concomitant]
  3. VITAMIN D3 [Concomitant]
  4. DILAUDID [Concomitant]
  5. BENGAY S.P.A [Concomitant]
  6. PERCOCET [Concomitant]
  7. HYDROCHLOROTHIAZIDE [Concomitant]
  8. TYLENOL [Concomitant]
  9. FERROUS GLUCONATE [Concomitant]
  10. OMEPRAZOLE [Concomitant]
     Route: 048
  11. METHYL SALICYLATE [Concomitant]
  12. TRAMADOL [Concomitant]
     Route: 048

REACTIONS (10)
  - Post procedural complication [Recovered/Resolved]
  - Incision site complication [Not Recovered/Not Resolved]
  - Suture rupture [Recovered/Resolved]
  - Wound haematoma [Recovered/Resolved]
  - Mobility decreased [Recovered/Resolved]
  - Pain [Recovered/Resolved]
  - Wound secretion [Recovered/Resolved]
  - Walking aid user [Not Recovered/Not Resolved]
  - Swelling [Recovered/Resolved]
  - Deep vein thrombosis [Recovered/Resolved]
